FAERS Safety Report 10181267 (Version 1)
Quarter: 2014Q2

REPORT INFORMATION
  Report Type: Spontaneous
  Country: US (occurrence: US)
  Receive Date: 20140519
  Receipt Date: 20140519
  Transmission Date: 20141212
  Serious: No
  Sender: FDA-Public Use
  Company Number: US-AMGEN INC.-USASP2014032495

PATIENT
  Sex: Female

DRUGS (1)
  1. PROLIA [Suspect]
     Indication: OSTEOPOROSIS
     Dosage: UNK
     Route: 065

REACTIONS (7)
  - Rash pustular [Recovered/Resolved]
  - Back pain [Unknown]
  - Rash pruritic [Recovered/Resolved]
  - Arthralgia [Unknown]
  - Gingival recession [Unknown]
  - Alopecia [Unknown]
  - Hair texture abnormal [Unknown]
